FAERS Safety Report 9187193 (Version 3)
Quarter: 2013Q2

REPORT INFORMATION
  Report Type: Report from Study
  Country: CA (occurrence: CA)
  Receive Date: 20130325
  Receipt Date: 20130524
  Transmission Date: 20140414
  Serious: Yes (Hospitalization)
  Sender: FDA-Public Use
  Company Number: CA-JNJFOC-20130309240

PATIENT
  Age: 51 Year
  Sex: Male
  Weight: 68.1 kg

DRUGS (12)
  1. REMICADE [Suspect]
     Indication: CROHN^S DISEASE
     Route: 042
     Dates: start: 20121220
  2. REMICADE [Suspect]
     Indication: CROHN^S DISEASE
     Route: 042
     Dates: start: 20130131
  3. PREDNISONE [Concomitant]
     Route: 065
  4. METHOTREXATE [Concomitant]
     Route: 065
  5. BUDESONIDE [Concomitant]
     Route: 065
  6. ALLOPURINOL [Concomitant]
     Route: 065
  7. CANDESARTAN [Concomitant]
     Route: 065
  8. CLAVULIN [Concomitant]
     Route: 065
  9. VITAMIN B12 [Concomitant]
     Route: 065
  10. FOLIC ACID [Concomitant]
     Route: 065
  11. VITAMIN A [Concomitant]
     Route: 065
  12. VITAMIN D [Concomitant]
     Route: 065

REACTIONS (2)
  - Fistula [Unknown]
  - Small intestinal resection [Recovering/Resolving]
